FAERS Safety Report 4526837-6 (Version None)
Quarter: 2004Q4

REPORT INFORMATION
  Report Type: 
  Country: None (occurrence: None)
  Receive Date: 20041213
  Receipt Date: 20041124
  Transmission Date: 20050328
  Serious: Yes (Death, Other)
  Sender: FDA-Public Use
  Company Number: MAG-2004-0000309

PATIENT
  Age: 63 Year
  Sex: Male

DRUGS (10)
  1. OXYCODONE HCL [Suspect]
     Indication: CANCER PAIN
     Dosage: SEE IMAGE
     Route: 048
     Dates: start: 20041012, end: 20041014
  2. OXYCODONE HCL [Suspect]
     Indication: CANCER PAIN
     Dosage: SEE IMAGE
     Route: 048
     Dates: start: 20041014, end: 20041019
  3. OXYCODONE HCL [Suspect]
     Indication: CANCER PAIN
     Dosage: SEE IMAGE
     Route: 048
     Dates: start: 20041019, end: 20041024
  4. PENTAZOCINE LACTATE [Concomitant]
  5. NOVAMIN (PROCHLORPERAZINE) [Concomitant]
  6. PHYSIOSOL (SODIUM CHLORIDE, SODIUM ACETATE, POTASSIUM CHLORIDE, MAGNES [Concomitant]
  7. MUCOSOLVAN (AMBROXOL HYDROCHLORIDE) [Concomitant]
  8. BISOLVON (BROMHEXINE HYDROCHLORIDE) [Concomitant]
  9. DIPROPHYLLINE (DIPROPHYLLINE) [Concomitant]
  10. CEFAMEZIN ^KNOLL^ (CEFAZOLIN SODIUM) [Concomitant]

REACTIONS (8)
  - INTERSTITIAL LUNG DISEASE [None]
  - MALIGNANT NEOPLASM PROGRESSION [None]
  - METASTASES TO BONE [None]
  - METASTASES TO LIVER [None]
  - METASTASES TO LUNG [None]
  - METASTASES TO LYMPH NODES [None]
  - OESOPHAGEAL CARCINOMA [None]
  - PNEUMONIA ASPIRATION [None]
